FAERS Safety Report 8163197-6 (Version None)
Quarter: 2012Q1

REPORT INFORMATION
  Report Type: 
  Country: None (occurrence: None)
  Receive Date: 20120224
  Receipt Date: 20110825
  Transmission Date: 20120608
  Serious: No
  Sender: FDA-Public Use
  Company Number: US-PFIZER INC-K201101001

PATIENT
  Sex: Male
  Weight: 55.329 kg

DRUGS (4)
  1. DILAUDID [Concomitant]
     Indication: HEADACHE
     Dosage: UNK
  2. FLECTOR [Suspect]
     Indication: HEADACHE
     Dosage: UNK PATCH, Q12 H
     Route: 061
     Dates: start: 20110822, end: 20110824
  3. XANAX [Concomitant]
     Indication: NERVOUSNESS
     Dosage: 0.25 MG, AS NEEDED
  4. EXTRA STRENGTH TYLENOL [Concomitant]
     Indication: HEADACHE
     Dosage: UNK

REACTIONS (3)
  - VISION BLURRED [None]
  - DISORIENTATION [None]
  - ALTERED STATE OF CONSCIOUSNESS [None]
